FAERS Safety Report 9195990 (Version 2)
Quarter: 2013Q2

REPORT INFORMATION
  Report Type: Spontaneous
  Country: US (occurrence: None)
  Receive Date: 20120703
  Receipt Date: 20121031
  Transmission Date: 20140414
  Serious: Yes (Hospitalization, Other)
  Sender: FDA-Public Use
  Company Number: PHEH2011US013102

PATIENT
  Age: 54 Year
  Sex: Female
  Weight: 75 kg

DRUGS (13)
  1. GILENYA [Suspect]
     Indication: MULTIPLE SCLEROSIS
     Route: 048
     Dates: start: 20110331, end: 20120727
  2. BABY ASPIRIN (ACETYLSALICYLIC ACID) [Concomitant]
  3. BACLOFEN (BACLOFEN) [Concomitant]
  4. CLONAZEPAM (CLONAZEPAM) [Concomitant]
  5. CYMBALTA (DULOXETINE HYDROCHLORIDE) [Concomitant]
  6. IMITREX (SUMATRIPTAN SUCCINATE) [Concomitant]
  7. LYRICA (PREGABALIN) [Concomitant]
  8. PERCOCET (OXYCODONE HYDROCHLORIDE, PARACETAMOL) [Concomitant]
  9. PREVACID (LANSOPRAZOLE) [Concomitant]
  10. VESICARE (SOLIFENACIN) [Concomitant]
  11. VISTARIL (HYDROXYZINE EMBONATE) [Concomitant]
  12. VITAMIN D (ERGOCALCIFEROL) [Concomitant]
  13. ZYRTEC (CETIRIZINE HYDROCHLORIDE) [Concomitant]

REACTIONS (7)
  - Fatigue [None]
  - Dizziness [None]
  - Urinary tract infection [None]
  - Lymphocyte percentage decreased [None]
  - Immunosuppression [None]
  - Pneumonia [None]
  - Balance disorder [None]
